FAERS Safety Report 14526713 (Version 1)
Quarter: 2018Q1

REPORT INFORMATION
  Report Type: Spontaneous
  Country: CA (occurrence: CA)
  Receive Date: 20180213
  Receipt Date: 20180213
  Transmission Date: 20180509
  Serious: Yes (Hospitalization, Other)
  Sender: FDA-Public Use
  Company Number: CA-JNJFOC-20180209140

PATIENT
  Age: 58 Year
  Sex: Male

DRUGS (3)
  1. IBRUTINIB [Suspect]
     Active Substance: IBRUTINIB
     Indication: CHRONIC LYMPHOCYTIC LEUKAEMIA
     Dosage: ANOTHER INTERRUPTION DUE TO LOWER GI BLEED
     Route: 048
  2. IBRUTINIB [Suspect]
     Active Substance: IBRUTINIB
     Indication: CHRONIC LYMPHOCYTIC LEUKAEMIA
     Dosage: 280 MG FOR CONCERN OF POSSIBLE WORSENING CYTOPENIAS
     Route: 048
     Dates: start: 201501
  3. IBRUTINIB [Suspect]
     Active Substance: IBRUTINIB
     Indication: CHRONIC LYMPHOCYTIC LEUKAEMIA
     Dosage: TRANSIENT IBRUTINIB INTERRUPTION IN SECOND YEAR DUE TO EPISODES OF PERIANAL CELLULITIS
     Route: 048
     Dates: start: 201507, end: 2016

REACTIONS (4)
  - CD4/CD8 ratio increased [Recovering/Resolving]
  - Haematoma [Unknown]
  - Anorectal cellulitis [Recovered/Resolved]
  - Lower gastrointestinal haemorrhage [Unknown]

NARRATIVE: CASE EVENT DATE: 2015
